FAERS Safety Report 9699210 (Version 3)
Quarter: 2015Q3

REPORT INFORMATION
  Report Type: Spontaneous
  Country: US (occurrence: US)
  Receive Date: 20131120
  Receipt Date: 20150803
  Transmission Date: 20151125
  Serious: Yes (Disabling)
  Sender: FDA-Public Use
  Company Number: US-GILEAD-2008-0015024

PATIENT
  Age: 59 Year
  Sex: Male
  Weight: 58.97 kg

DRUGS (8)
  1. TETRACYCLINE [Concomitant]
     Active Substance: TETRACYCLINE
     Indication: DUODENAL ULCER
     Route: 048
  2. HYOSCYAMINE SULFATE/ATROPINE SULFATE/HYOSCINE HYDROBROMIDE/PHENOBARBITAL [Concomitant]
     Indication: IRRITABLE BOWEL SYNDROME
     Route: 048
  3. REVATIO [Concomitant]
     Active Substance: SILDENAFIL CITRATE
     Indication: PULMONARY ARTERIAL HYPERTENSION
     Route: 048
  4. LISINOPRIL. [Concomitant]
     Active Substance: LISINOPRIL
     Indication: ESSENTIAL HYPERTENSION
     Route: 048
  5. CUPRIMINE [Concomitant]
     Active Substance: PENICILLAMINE
     Indication: SUPPLEMENTATION THERAPY
     Route: 048
  6. LETAIRIS [Suspect]
     Active Substance: AMBRISENTAN
     Indication: PULMONARY ARTERIAL HYPERTENSION
     Route: 048
     Dates: start: 20071121, end: 20080117
  7. PROCARDIA XL [Concomitant]
     Active Substance: NIFEDIPINE
     Indication: ESSENTIAL HYPERTENSION
     Route: 048
  8. PROTONIX [Concomitant]
     Active Substance: PANTOPRAZOLE SODIUM
     Indication: GASTROOESOPHAGEAL REFLUX DISEASE
     Route: 048

REACTIONS (1)
  - Dyspnoea [Recovered/Resolved]

NARRATIVE: CASE EVENT DATE: 20080105
